FAERS Safety Report 6891748-8 (Version None)
Quarter: 2010Q3

REPORT INFORMATION
  Report Type: 
  Country: None (occurrence: None)
  Receive Date: 20100731
  Receipt Date: 20071031
  Transmission Date: 20110219
  Serious: No
  Sender: FDA-Public Use
  Company Number: US-PFIZER INC-2007076280

PATIENT
  Sex: Female
  Weight: 65.77 kg

DRUGS (12)
  1. NEURONTIN [Suspect]
  2. PROCRIT [Suspect]
     Indication: ANAEMIA OF MALIGNANT DISEASE
     Route: 058
  3. PROCRIT [Suspect]
     Dosage: INTERVAL: 1 IN 1 WEEK
  4. LOVASTATIN [Concomitant]
  5. AMILORIDE HYDROCHLORIDE [Concomitant]
  6. CENTRUM SILVER [Concomitant]
  7. STRESSTABS [Concomitant]
  8. GLUCOSAMINE W/CHONDROITIN SULFATES [Concomitant]
  9. CALCIUM CITRATE [Concomitant]
  10. ZINC [Concomitant]
  11. ACETYLSALICYLIC ACID SRT [Concomitant]
  12. CODEINE [Concomitant]
     Indication: HYPERSENSITIVITY

REACTIONS (3)
  - DRUG INEFFECTIVE [None]
  - HYPOAESTHESIA [None]
  - PARAESTHESIA [None]
